FAERS Safety Report 21062454 (Version 4)
Quarter: 2023Q1

REPORT INFORMATION
  Report Type: Report from Study
  Country: JP (occurrence: JP)
  Receive Date: 20220711
  Receipt Date: 20230118
  Transmission Date: 20230418
  Serious: Yes (Death, Hospitalization, Other)
  Sender: FDA-Public Use
  Company Number: JP-ONO-2021JP011191

PATIENT
  Age: 75 Year
  Sex: Male
  Weight: 57.7 kg

DRUGS (31)
  1. ETELCALCETIDE [Suspect]
     Active Substance: ETELCALCETIDE
     Indication: Hyperparathyroidism secondary
     Dosage: 2.5 MILLIGRAM, Q56H
     Route: 010
     Dates: start: 20200306, end: 20200325
  2. ETELCALCETIDE [Suspect]
     Active Substance: ETELCALCETIDE
     Dosage: 5 MILLIGRAM, Q56H
     Route: 010
     Dates: start: 20200327, end: 20200511
  3. ETELCALCETIDE [Suspect]
     Active Substance: ETELCALCETIDE
     Dosage: 2.5 MILLIGRAM, Q56H
     Route: 010
     Dates: start: 20200513
  4. MAXACALCITOL [Concomitant]
     Active Substance: MAXACALCITOL
     Dosage: 5 MICROGRAM, Q56H
     Route: 065
     Dates: start: 20190807, end: 20190909
  5. MAXACALCITOL [Concomitant]
     Active Substance: MAXACALCITOL
     Dosage: 5 MICROGRAM, Q56H
     Route: 065
     Dates: start: 20190930, end: 20191120
  6. MAXACALCITOL [Concomitant]
     Active Substance: MAXACALCITOL
     Dosage: 5 MICROGRAM, Q56H
     Route: 065
     Dates: start: 20200203, end: 20200417
  7. MAXACALCITOL [Concomitant]
     Active Substance: MAXACALCITOL
     Dosage: 2.5 MICROGRAM, Q56H
     Route: 065
     Dates: start: 20200420, end: 20220725
  8. Fesin [Concomitant]
     Dosage: 80 MILLIGRAM, QWK
     Route: 042
     Dates: start: 20190614, end: 20190628
  9. Fesin [Concomitant]
     Dosage: 80 MILLIGRAM, QWK
     Dates: start: 20191011, end: 20191021
  10. Fesin [Concomitant]
     Dosage: 80 MILLIGRAM, QWK
     Dates: start: 20200717, end: 20200803
  11. Fesin [Concomitant]
     Dosage: 80 MILLIGRAM, QWK
     Dates: start: 20210212, end: 20210222
  12. Fesin [Concomitant]
     Dosage: 80 MILLIGRAM, QWK
     Dates: start: 20210521, end: 20210531
  13. Fesin [Concomitant]
     Dosage: 80 MILLIGRAM, QWK
     Dates: start: 20210618, end: 20210628
  14. Fesin [Concomitant]
     Dosage: 80 MILLIGRAM, QWK
     Dates: start: 20210820, end: 20210913
  15. Fesin [Concomitant]
     Dosage: 80 MILLIGRAM, QWK
     Dates: start: 20220122, end: 20220131
  16. Fesin [Concomitant]
     Dosage: 80 MILLIGRAM, QWK
     Dates: start: 20220318, end: 20220325
  17. Fesin [Concomitant]
     Dosage: 80 MILLIGRAM, QWK
     Dates: start: 20220416, end: 20220425
  18. Fesin [Concomitant]
     Dosage: 80 MILLIGRAM, QWK
     Dates: start: 20220617, end: 20220627
  19. FOSRENOL [Concomitant]
     Active Substance: LANTHANUM CARBONATE
     Dosage: 1500 MILLIGRAM, QD
     Route: 048
     Dates: start: 20190228, end: 20220125
  20. ERYTHROPOIETIN [Concomitant]
     Active Substance: ERYTHROPOIETIN
     Dosage: 9000 INTERNATIONAL UNIT, QWK
     Route: 065
     Dates: start: 20190930, end: 20191120
  21. ERYTHROPOIETIN [Concomitant]
     Active Substance: ERYTHROPOIETIN
     Dosage: 9000 INTERNATIONAL UNIT, QWK
     Dates: start: 20191216, end: 20191225
  22. ERYTHROPOIETIN [Concomitant]
     Active Substance: ERYTHROPOIETIN
     Dosage: 750 INTERNATIONAL UNIT, QWK
     Dates: start: 20200504, end: 20211108
  23. ERYTHROPOIETIN [Concomitant]
     Active Substance: ERYTHROPOIETIN
     Dosage: 1500 INTERNATIONAL UNIT, QWK
     Dates: start: 20211112, end: 20211122
  24. ERYTHROPOIETIN [Concomitant]
     Active Substance: ERYTHROPOIETIN
     Dosage: 2250 INTERNATIONAL UNIT, QWK
     Dates: start: 20211124, end: 20220131
  25. ERYTHROPOIETIN [Concomitant]
     Active Substance: ERYTHROPOIETIN
     Dosage: 3000 INTERNATIONAL UNIT, QWK
     Dates: start: 20220202, end: 20220216
  26. ERYTHROPOIETIN [Concomitant]
     Active Substance: ERYTHROPOIETIN
     Dosage: 4500 INTERNATIONAL UNIT, QWK
     Dates: start: 20220218, end: 20220228
  27. ERYTHROPOIETIN [Concomitant]
     Active Substance: ERYTHROPOIETIN
     Dosage: 6750 INTERNATIONAL UNIT, QWK
     Dates: start: 20220302, end: 20220316
  28. ERYTHROPOIETIN [Concomitant]
     Active Substance: ERYTHROPOIETIN
     Dosage: 7500 INTERNATIONAL UNIT, QWK
     Dates: start: 20220318, end: 20220627
  29. ERYTHROPOIETIN [Concomitant]
     Active Substance: ERYTHROPOIETIN
     Dosage: 4500 INTERNATIONAL UNIT, QWK
     Dates: start: 20220629, end: 20220711
  30. ERYTHROPOIETIN [Concomitant]
     Active Substance: ERYTHROPOIETIN
     Dosage: 2250 INTERNATIONAL UNIT, QWK
     Dates: start: 20220713, end: 20220722
  31. ERYTHROPOIETIN [Concomitant]
     Active Substance: ERYTHROPOIETIN
     Dosage: 750 INTERNATIONAL UNIT, QWK
     Dates: start: 20220725, end: 20220801

REACTIONS (12)
  - COVID-19 [Fatal]
  - Lumbar spinal stenosis [Not Recovered/Not Resolved]
  - Squamous cell carcinoma of lung [Recovering/Resolving]
  - Spinal compression fracture [Recovered/Resolved]
  - Wound [Recovered/Resolved]
  - Lip injury [Recovered/Resolved]
  - Fall [Unknown]
  - Contusion [Recovered/Resolved]
  - Swelling of eyelid [Recovered/Resolved]
  - Wound [Recovered/Resolved]
  - Fall [Unknown]
  - Fall [Unknown]

NARRATIVE: CASE EVENT DATE: 20201214
